FAERS Safety Report 8181413-1 (Version None)
Quarter: 2012Q1

REPORT INFORMATION
  Report Type: 
  Country: None (occurrence: None)
  Receive Date: 20120302
  Receipt Date: 20120223
  Transmission Date: 20120608
  Serious: Yes (Other)
  Sender: FDA-Public Use
  Company Number: US-JNJFOC-20120212105

PATIENT
  Sex: Female
  Weight: 77.11 kg

DRUGS (4)
  1. METHOTREXATE [Concomitant]
     Indication: RHEUMATOID ARTHRITIS
     Dates: start: 20090101
  2. HYDROCODONE BITARTRATE [Concomitant]
     Indication: PAIN
     Dates: start: 20080101
  3. SIMPONI [Suspect]
     Indication: RHEUMATOID ARTHRITIS
     Route: 058
     Dates: start: 20110101
  4. SYNTHROID [Concomitant]
     Indication: THYROID DISORDER
     Dates: start: 20040101

REACTIONS (5)
  - HYPERTENSION [None]
  - DEVICE MALFUNCTION [None]
  - ULCER [None]
  - DRUG DOSE OMISSION [None]
  - NERVOUSNESS [None]
